FAERS Safety Report 9245008 (Version 2)
Quarter: 2013Q2

REPORT INFORMATION
  Report Type: Report from Study
  Country: US (occurrence: US)
  Receive Date: 20130422
  Receipt Date: 20130510
  Transmission Date: 20140414
  Serious: Yes (Hospitalization)
  Sender: FDA-Public Use
  Company Number: US-ACTELION-A-NJ2013-82069

PATIENT
  Age: 71 Year
  Sex: Female

DRUGS (4)
  1. TRACLEER [Suspect]
     Indication: PULMONARY ARTERIAL HYPERTENSION
     Dosage: UNK
     Route: 048
     Dates: start: 20110608
  2. TYVASO [Concomitant]
     Dosage: 9 UNK, UNK
  3. TOPROL [Concomitant]
     Dosage: 16.5 MG, UNK
  4. XARELTO [Concomitant]
     Dosage: 20 MG, QD

REACTIONS (2)
  - Atrial flutter [Unknown]
  - Cardiac ablation [Unknown]
